FAERS Safety Report 5354599-1 (Version None)
Quarter: 2007Q2

REPORT INFORMATION
  Report Type: 
  Country: None (occurrence: None)
  Receive Date: 20070612
  Receipt Date: 20070531
  Transmission Date: 20071010
  Serious: No
  Sender: FDA-Public Use
  Company Number: US-ASTRAZENECA-2006UW07898

PATIENT
  Age: 14640 Day
  Sex: Female
  Weight: 87.3 kg

DRUGS (3)
  1. SEROQUEL [Suspect]
     Indication: SCHIZOPHRENIA
     Route: 048
     Dates: start: 20000101
  2. ZYPREXA [Concomitant]
  3. ZOLOFT [Concomitant]

REACTIONS (1)
  - DIABETES MELLITUS [None]
